FAERS Safety Report 5564656-2 (Version None)
Quarter: 2007Q4

REPORT INFORMATION
  Report Type: 
  Country: None (occurrence: None)
  Receive Date: 20071218
  Receipt Date: 20071206
  Transmission Date: 20080405
  Serious: Yes (Other)
  Sender: FDA-Public Use
  Company Number: JP-AMGEN-US255727

PATIENT
  Sex: Female
  Weight: 43 kg

DRUGS (11)
  1. ENBREL [Suspect]
     Indication: RHEUMATOID ARTHRITIS
     Route: 058
     Dates: start: 20050420, end: 20070312
  2. MOBIC [Concomitant]
     Indication: RHEUMATOID ARTHRITIS
     Route: 048
  3. ALFACALCIDOL [Concomitant]
     Indication: OSTEOPOROSIS
     Route: 048
  4. PREDNISOLONE [Concomitant]
     Indication: RHEUMATOID ARTHRITIS
     Route: 048
  5. DEPAS [Concomitant]
     Dosage: UNSPECIFIED
     Route: 048
  6. NORVASC [Concomitant]
     Indication: HYPERTENSION
     Route: 048
  7. SULFASALAZINE [Concomitant]
     Route: 048
     Dates: end: 20050616
  8. MUCOSTA [Concomitant]
     Dosage: UNSPECIFIED
     Route: 048
  9. BLOPRESS [Concomitant]
     Dosage: UNSPECIFIED
     Route: 048
  10. RHEUMATREX [Concomitant]
     Route: 048
  11. FOLIAMIN [Concomitant]
     Route: 048

REACTIONS (1)
  - FEELING ABNORMAL [None]
